FAERS Safety Report 16700938 (Version 2)
Quarter: 2019Q3

REPORT INFORMATION
  Report Type: Spontaneous
  Country: US (occurrence: US)
  Receive Date: 20190814
  Receipt Date: 20190815
  Transmission Date: 20191004
  Serious: No
  Sender: FDA-Public Use
  Company Number: US-TEVA-2019-US-1093393

PATIENT
  Age: 75 Year
  Sex: Female

DRUGS (1)
  1. ZOLPIDEM TARTRATE TABLETS [Suspect]
     Active Substance: ZOLPIDEM TARTRATE
     Indication: INSOMNIA
     Route: 065
     Dates: end: 20190805

REACTIONS (4)
  - Insomnia [Unknown]
  - Product substitution issue [Unknown]
  - Nightmare [Unknown]
  - Chest pain [Unknown]

NARRATIVE: CASE EVENT DATE: 20190804
